FAERS Safety Report 6407352-1 (Version None)
Quarter: 2009Q4

REPORT INFORMATION
  Report Type: 
  Country: None (occurrence: None)
  Receive Date: 20091020
  Receipt Date: 20091012
  Transmission Date: 20100525
  Serious: Yes (Hospitalization)
  Sender: FDA-Public Use
  Company Number: JP-AVENTIS-200912088JP

PATIENT

DRUGS (1)
  1. ARAVA [Suspect]
     Route: 048
     Dates: start: 20070601

REACTIONS (1)
  - FEMUR FRACTURE [None]
